FAERS Safety Report 6206991-0 (Version None)
Quarter: 2009Q2

REPORT INFORMATION
  Report Type: 
  Country: None (occurrence: None)
  Receive Date: 20090528
  Receipt Date: 20090520
  Transmission Date: 20091009
  Serious: Yes (Other)
  Sender: FDA-Public Use
  Company Number: PHHY2009JP04245

PATIENT
  Age: 71 Year
  Sex: Female

DRUGS (4)
  1. DIOVAN [Suspect]
     Indication: HYPERTENSION
     Dosage: 80 MG, BID
     Route: 048
     Dates: start: 20090203, end: 20090203
  2. DIOVAN [Suspect]
     Dosage: 80 MG, QD
     Dates: start: 20090223, end: 20090309
  3. PERDIPINE [Suspect]
     Indication: HYPERTENSION
     Dosage: UNK
     Route: 042
     Dates: start: 20090203
  4. PERDIPINE [Suspect]
     Indication: CEREBRAL HAEMORRHAGE

REACTIONS (4)
  - AUTONOMIC NEUROPATHY [None]
  - BLOOD PRESSURE FLUCTUATION [None]
  - HYPOTENSION [None]
  - MALAISE [None]
